FAERS Safety Report 6829807-8 (Version None)
Quarter: 2010Q3

REPORT INFORMATION
  Report Type: 
  Country: None (occurrence: None)
  Receive Date: 20100709
  Receipt Date: 20100211
  Transmission Date: 20110219
  Serious: No
  Sender: FDA-Public Use
  Company Number: US-PFIZER INC-2007013201

PATIENT
  Sex: Female
  Weight: 55.33 kg

DRUGS (13)
  1. CHANTIX [Suspect]
     Indication: SMOKING CESSATION THERAPY
     Dosage: 0.5 MG, 1X/DAY
     Dates: start: 20060101
  2. LIPITOR [Concomitant]
  3. ZETIA [Concomitant]
  4. ZYBAN [Concomitant]
  5. ZELNORM [Concomitant]
  6. NEXIUM [Concomitant]
  7. ATENOLOL [Concomitant]
     Indication: HYPERTENSION
  8. EVISTA [Concomitant]
     Indication: OSTEOPOROSIS
  9. CALCIUM CARBONATE [Concomitant]
  10. MULTI-VITAMINS [Concomitant]
  11. VITAMIN B-12 [Concomitant]
  12. MICROZIDE [Concomitant]
     Dosage: UNK
  13. NORVASC [Concomitant]
     Dosage: UNK

REACTIONS (3)
  - DYSGEUSIA [None]
  - FEELING ABNORMAL [None]
  - NAUSEA [None]
